FAERS Safety Report 10206412 (Version 2)
Quarter: 2014Q2

REPORT INFORMATION
  Report Type: Spontaneous
  Country: IL (occurrence: IL)
  Receive Date: 20140530
  Receipt Date: 20140609
  Transmission Date: 20141212
  Serious: Yes (Other)
  Sender: FDA-Public Use
  Company Number: IL-JNJFOC-20140511806

PATIENT
  Sex: Male

DRUGS (5)
  1. STELARA [Suspect]
     Indication: PRODUCT USED FOR UNKNOWN INDICATION
     Route: 058
  2. CADEX [Concomitant]
     Indication: HYPERTENSION
     Route: 065
  3. PRADAXA [Concomitant]
     Indication: PRODUCT USED FOR UNKNOWN INDICATION
     Route: 065
  4. NORMOPRESAN [Concomitant]
     Indication: HYPERTENSION
     Route: 065
  5. ATACAND [Concomitant]
     Indication: HYPERTENSION
     Route: 065

REACTIONS (2)
  - Aortic valve stenosis [Unknown]
  - Left atrial dilatation [Unknown]
